APPROVED DRUG PRODUCT: VERAPAMIL HYDROCHLORIDE
Active Ingredient: VERAPAMIL HYDROCHLORIDE
Strength: 240MG
Dosage Form/Route: TABLET, EXTENDED RELEASE;ORAL
Application: A074587 | Product #001
Applicant: RISING PHARMA HOLDING INC
Approved: Mar 23, 1996 | RLD: No | RS: No | Type: DISCN